FAERS Safety Report 5492160-9 (Version None)
Quarter: 2007Q4

REPORT INFORMATION
  Report Type: 
  Country: None (occurrence: None)
  Receive Date: 20071015
  Receipt Date: 20070626
  Transmission Date: 20080405
  Serious: No
  Sender: FDA-Public Use
  Company Number: 2007SP002373

PATIENT
  Age: 72 Year
  Sex: Female
  Weight: 60.3284 kg

DRUGS (4)
  1. LUNESTA [Suspect]
     Indication: INSOMNIA
     Dosage: 3 MG;HS;ORAL
     Route: 048
     Dates: start: 20070222
  2. PRILOSEC [Concomitant]
  3. MIRALAX [Concomitant]
  4. DEXAMETHASONE TAB [Concomitant]

REACTIONS (4)
  - DRUG INEFFECTIVE [None]
  - EYELID OEDEMA [None]
  - FATIGUE [None]
  - MIDDLE INSOMNIA [None]
